FAERS Safety Report 6655615-7 (Version None)
Quarter: 2010Q1

REPORT INFORMATION
  Report Type: 
  Country: None (occurrence: None)
  Receive Date: 20100329
  Receipt Date: 20091127
  Transmission Date: 20100710
  Serious: Yes (Hospitalization, Other)
  Sender: FDA-Public Use
  Company Number: US-ASTRAZENECA-2009SE29405

PATIENT
  Sex: Female

DRUGS (3)
  1. NEXIUM [Suspect]
     Indication: OESOPHAGEAL PAIN
     Route: 048
  2. NEXIUM [Suspect]
     Route: 048
  3. KIONEX POWDER [Concomitant]

REACTIONS (5)
  - COLOSTOMY [None]
  - GENERAL PHYSICAL HEALTH DETERIORATION [None]
  - HAEMATOCHEZIA [None]
  - ILEECTOMY [None]
  - NAUSEA [None]
